FAERS Safety Report 4925077-6 (Version None)
Quarter: 2006Q1

REPORT INFORMATION
  Report Type: 
  Country: None (occurrence: None)
  Receive Date: 20060222
  Receipt Date: 20060209
  Transmission Date: 20060701
  Serious: Yes (Hospitalization, Other)
  Sender: FDA-Public Use
  Company Number: 2006020300

PATIENT
  Age: 65 Year
  Sex: Female
  Weight: 54.4316 kg

DRUGS (10)
  1. LIPITOR [Suspect]
     Indication: BLOOD CHOLESTEROL INCREASED
     Dosage: 20 MG (20 MG, 1 IN 1 D), ORAL
     Route: 048
  2. AMOXICILLIN [Suspect]
     Indication: NASOPHARYNGITIS
     Dates: start: 20060101, end: 20060101
  3. ACTOS [Concomitant]
  4. POTASSIUM (POTASSIUM) [Concomitant]
  5. LISINOPRIL [Concomitant]
  6. FUROSEMIDE [Concomitant]
  7. TRICOR [Concomitant]
  8. ALPRAZOLAM [Concomitant]
  9. WARFARIN SODIUM [Concomitant]
  10. AMIODARONE (AMIODARONE) [Concomitant]

REACTIONS (6)
  - ADVERSE EVENT [None]
  - BLOOD CHOLESTEROL INCREASED [None]
  - DYSPNOEA [None]
  - NASOPHARYNGITIS [None]
  - RENAL CELL CARCINOMA STAGE UNSPECIFIED [None]
  - TREATMENT NONCOMPLIANCE [None]
